FAERS Safety Report 26120894 (Version 1)
Quarter: 2025Q4

REPORT INFORMATION
  Report Type: Report from Study
  Country: US (occurrence: US)
  Receive Date: 20251204
  Receipt Date: 20251204
  Transmission Date: 20260118
  Serious: Yes (Death)
  Sender: MYLAN
  Company Number: US-MYLANLABS-2025M1102802

PATIENT
  Age: 72 Year
  Sex: Male

DRUGS (24)
  1. TRETINOIN [Suspect]
     Active Substance: TRETINOIN
     Indication: Acute promyelocytic leukaemia
     Dosage: AS A PART OF INDUCTION THERAPY
  2. TRETINOIN [Suspect]
     Active Substance: TRETINOIN
     Dosage: AS A PART OF INDUCTION THERAPY
  3. TRETINOIN [Suspect]
     Active Substance: TRETINOIN
     Dosage: AS A PART OF INDUCTION THERAPY
     Route: 065
  4. TRETINOIN [Suspect]
     Active Substance: TRETINOIN
     Dosage: AS A PART OF INDUCTION THERAPY
     Route: 065
  5. TRETINOIN [Suspect]
     Active Substance: TRETINOIN
     Dosage: AS A PART OF CONSOLIDATION THERAPY
  6. TRETINOIN [Suspect]
     Active Substance: TRETINOIN
     Dosage: AS A PART OF CONSOLIDATION THERAPY
  7. TRETINOIN [Suspect]
     Active Substance: TRETINOIN
     Dosage: AS A PART OF CONSOLIDATION THERAPY
     Route: 065
  8. TRETINOIN [Suspect]
     Active Substance: TRETINOIN
     Dosage: AS A PART OF CONSOLIDATION THERAPY
     Route: 065
  9. TRETINOIN [Suspect]
     Active Substance: TRETINOIN
     Dosage: AS A PART OF MAINTENANCE THERAPY
  10. TRETINOIN [Suspect]
     Active Substance: TRETINOIN
     Dosage: AS A PART OF MAINTENANCE THERAPY
     Route: 065
  11. TRETINOIN [Suspect]
     Active Substance: TRETINOIN
     Dosage: AS A PART OF MAINTENANCE THERAPY
  12. TRETINOIN [Suspect]
     Active Substance: TRETINOIN
     Dosage: AS A PART OF MAINTENANCE THERAPY
     Route: 065
  13. DAUNORUBICIN [Suspect]
     Active Substance: DAUNORUBICIN
     Indication: Acute promyelocytic leukaemia
     Dosage: AS A PART OF INDUCTION THERAPY
  14. DAUNORUBICIN [Suspect]
     Active Substance: DAUNORUBICIN
     Dosage: AS A PART OF INDUCTION THERAPY
  15. DAUNORUBICIN [Suspect]
     Active Substance: DAUNORUBICIN
     Dosage: AS A PART OF INDUCTION THERAPY
     Route: 065
  16. DAUNORUBICIN [Suspect]
     Active Substance: DAUNORUBICIN
     Dosage: AS A PART OF INDUCTION THERAPY
     Route: 065
  17. DAUNORUBICIN [Suspect]
     Active Substance: DAUNORUBICIN
     Dosage: AS A PART OF CONSOLIDATION THERAPY
  18. DAUNORUBICIN [Suspect]
     Active Substance: DAUNORUBICIN
     Dosage: AS A PART OF CONSOLIDATION THERAPY
  19. DAUNORUBICIN [Suspect]
     Active Substance: DAUNORUBICIN
     Dosage: AS A PART OF CONSOLIDATION THERAPY
     Route: 065
  20. DAUNORUBICIN [Suspect]
     Active Substance: DAUNORUBICIN
     Dosage: AS A PART OF CONSOLIDATION THERAPY
     Route: 065
  21. CYTARABINE [Suspect]
     Active Substance: CYTARABINE
     Indication: Acute promyelocytic leukaemia
     Dosage: AS A PART OF INDUCTION THERAPY
  22. CYTARABINE [Suspect]
     Active Substance: CYTARABINE
     Dosage: AS A PART OF INDUCTION THERAPY
     Route: 065
  23. CYTARABINE [Suspect]
     Active Substance: CYTARABINE
     Dosage: AS A PART OF INDUCTION THERAPY
     Route: 065
  24. CYTARABINE [Suspect]
     Active Substance: CYTARABINE
     Dosage: AS A PART OF INDUCTION THERAPY

REACTIONS (2)
  - Myelodysplastic syndrome with excess blasts [Fatal]
  - Product prescribing issue [Unknown]
